FAERS Safety Report 11186337 (Version 1)
Quarter: 2015Q2

REPORT INFORMATION
  Report Type: Spontaneous
  Country: US (occurrence: US)
  Receive Date: 20150612
  Receipt Date: 20150612
  Transmission Date: 20150821
  Serious: Yes (Hospitalization)
  Sender: FDA-Public Use
  Company Number: US-ASTRAZENECA-2015SE55484

PATIENT
  Age: 26249 Day
  Sex: Female
  Weight: 79.4 kg

DRUGS (7)
  1. DILTIAZEM [Concomitant]
     Active Substance: DILTIAZEM
     Indication: ATRIAL FIBRILLATION
     Route: 065
     Dates: start: 201505
  2. ZOLOFT [Concomitant]
     Active Substance: SERTRALINE HYDROCHLORIDE
     Route: 065
  3. METOPROLOL SUCCINATE. [Suspect]
     Active Substance: METOPROLOL SUCCINATE
     Indication: ATRIAL FIBRILLATION
     Route: 048
  4. METOPROLOL SUCCINATE. [Suspect]
     Active Substance: METOPROLOL SUCCINATE
     Indication: ATRIAL FIBRILLATION
     Route: 048
     Dates: start: 20150416
  5. MOVANTIK [Suspect]
     Active Substance: NALOXEGOL OXALATE
     Indication: CONSTIPATION
     Route: 048
     Dates: start: 20150603
  6. OXYCONTIN [Suspect]
     Active Substance: OXYCODONE HYDROCHLORIDE
     Indication: PAIN
     Dosage: OXYCODONE
     Route: 065
     Dates: end: 20150603
  7. OXYCONTIN [Suspect]
     Active Substance: OXYCODONE HYDROCHLORIDE
     Indication: PAIN
     Route: 065
     Dates: end: 20150601

REACTIONS (9)
  - Abdominal pain upper [Not Recovered/Not Resolved]
  - Atrial fibrillation [Unknown]
  - Constipation [Unknown]
  - Frequent bowel movements [Not Recovered/Not Resolved]
  - Nausea [Unknown]
  - Pain [Unknown]
  - Therapy cessation [Unknown]
  - Off label use [Unknown]
  - Heart rate increased [Unknown]

NARRATIVE: CASE EVENT DATE: 20150416
